FAERS Safety Report 5508980-8 (Version None)
Quarter: 2007Q4

REPORT INFORMATION
  Report Type: 
  Country: None (occurrence: None)
  Receive Date: 20071107
  Receipt Date: 20071003
  Transmission Date: 20080405
  Serious: Yes (Death)
  Sender: FDA-Public Use
  Company Number: US-SANOFI-SYNTHELABO-A03200705873

PATIENT

DRUGS (1)
  1. ZOLPIDEM TARTRATE [Suspect]
     Indication: DRUG USE FOR UNKNOWN INDICATION
     Dosage: UNK
     Route: 048

REACTIONS (64)
  - ABDOMINAL PAIN [None]
  - ACIDOSIS [None]
  - AGITATION [None]
  - ALANINE AMINOTRANSFERASE DECREASED [None]
  - ARRHYTHMIA [None]
  - ASPARTATE AMINOTRANSFERASE DECREASED [None]
  - ATAXIA [None]
  - BLOOD BILIRUBIN INCREASED [None]
  - BLOOD CREATINE PHOSPHOKINASE INCREASED [None]
  - BLOOD ELECTROLYTES ABNORMAL [None]
  - BRADYCARDIA [None]
  - CARDIAC ARREST [None]
  - CEREBROVASCULAR ACCIDENT [None]
  - CHEST PAIN [None]
  - COMA [None]
  - CONDUCTION DISORDER [None]
  - CONFUSIONAL STATE [None]
  - CONVULSION [None]
  - DEATH [None]
  - DELUSION [None]
  - DIARRHOEA [None]
  - DIZZINESS [None]
  - DRUG ABUSE [None]
  - DYSARTHRIA [None]
  - DYSPHAGIA [None]
  - DYSPNOEA [None]
  - ERYTHEMA [None]
  - HAEMORRHAGE [None]
  - HALLUCINATION [None]
  - HEADACHE [None]
  - HYPERHIDROSIS [None]
  - HYPERTENSION [None]
  - HYPERVENTILATION [None]
  - HYPOGLYCAEMIA [None]
  - HYPOTENSION [None]
  - HYPOTHERMIA [None]
  - INTENTIONAL DRUG MISUSE [None]
  - LIVER FUNCTION TEST ABNORMAL [None]
  - MELAENA [None]
  - MIOSIS [None]
  - MUSCULAR WEAKNESS [None]
  - MYDRIASIS [None]
  - NAUSEA [None]
  - OEDEMA [None]
  - PAIN [None]
  - PALLOR [None]
  - PRURITUS [None]
  - PYREXIA [None]
  - RECTAL HAEMORRHAGE [None]
  - RESPIRATORY ARREST [None]
  - RESPIRATORY DEPRESSION [None]
  - RHABDOMYOLYSIS [None]
  - SOMNOLENCE [None]
  - SUICIDE ATTEMPT [None]
  - SYNCOPE [None]
  - TACHYCARDIA [None]
  - TREMOR [None]
  - URINARY RETENTION [None]
  - URINE COLOUR ABNORMAL [None]
  - URTICARIA [None]
  - VENTRICULAR TACHYCARDIA [None]
  - VISION BLURRED [None]
  - VISUAL DISTURBANCE [None]
  - VOMITING [None]
